FAERS Safety Report 4626727-4 (Version None)
Quarter: 2005Q2

REPORT INFORMATION
  Report Type: 
  Country: None (occurrence: None)
  Receive Date: 20050401
  Receipt Date: 20050401
  Transmission Date: 20051028
  Serious: No
  Sender: FDA-Public Use
  Company Number: None

PATIENT
  Sex: Male
  Weight: 62.3 kg

DRUGS (2)
  1. CISPLATIN [Suspect]
     Dosage: (IV INFUSION OVER 8 HOURS) ON DAYS 1,22, AND 43
     Route: 042
     Dates: start: 20050131
  2. RADIATION [Suspect]

REACTIONS (8)
  - BLOOD CALCIUM DECREASED [None]
  - BLOOD CREATININE INCREASED [None]
  - BLOOD MAGNESIUM DECREASED [None]
  - CONSTIPATION [None]
  - DEHYDRATION [None]
  - NAUSEA [None]
  - SKIN EXFOLIATION [None]
  - VOMITING [None]
